FAERS Safety Report 4705396-9 (Version None)
Quarter: 2005Q3

REPORT INFORMATION
  Report Type: 
  Country: None (occurrence: None)
  Receive Date: 20050701
  Receipt Date: 20050630
  Transmission Date: 20060218
  Serious: Yes (Hospitalization, Disabling)
  Sender: FDA-Public Use
  Company Number: US-GLAXOSMITHKLINE-A0564755A

PATIENT
  Age: 86 Year
  Sex: Female

DRUGS (11)
  1. WELLBUTRIN SR [Suspect]
     Indication: DRUG USE FOR UNKNOWN INDICATION
     Dosage: 200MG TWICE PER DAY
     Route: 048
     Dates: end: 20050627
  2. DIGOXIN [Concomitant]
  3. NORVASC [Concomitant]
  4. GLIPIZIDE [Concomitant]
  5. AVANDIA [Concomitant]
  6. PRANDIN [Concomitant]
  7. TOPROL-XL [Concomitant]
  8. LIPITOR [Concomitant]
  9. CELEXA [Concomitant]
  10. MEGACE [Concomitant]
  11. REMINYL [Concomitant]

REACTIONS (4)
  - CONFUSIONAL STATE [None]
  - DEHYDRATION [None]
  - DEMENTIA [None]
  - HALLUCINATION [None]
